FAERS Safety Report 6142038-2 (Version None)
Quarter: 2009Q2

REPORT INFORMATION
  Report Type: 
  Country: None (occurrence: None)
  Receive Date: 20090402
  Receipt Date: 20090324
  Transmission Date: 20091009
  Serious: Yes (Hospitalization)
  Sender: FDA-Public Use
  Company Number: US-ABBOTT-09P-163-0560673-00

PATIENT
  Sex: Male
  Weight: 83.99 kg

DRUGS (5)
  1. HUMIRA [Suspect]
     Indication: COLITIS ULCERATIVE
     Dosage: LOADING DOSE 4 PENS
     Route: 058
     Dates: start: 20090227, end: 20090305
  2. HUMIRA [Suspect]
     Dates: start: 20090317
  3. GLUCOPHAGE [Concomitant]
     Indication: DIABETES MELLITUS
     Route: 048
  4. ASACOL [Concomitant]
     Indication: COLITIS ULCERATIVE
     Route: 048
  5. EFFEXOR [Concomitant]
     Indication: HYPERTENSION
     Route: 048

REACTIONS (6)
  - DYSPNOEA [None]
  - INFLUENZA [None]
  - NAUSEA [None]
  - PNEUMONIA [None]
  - PYREXIA [None]
  - RESPIRATORY TRACT CONGESTION [None]
